FAERS Safety Report 5808050-5 (Version None)
Quarter: 2008Q3

REPORT INFORMATION
  Report Type: 
  Country: None (occurrence: None)
  Receive Date: 20080711
  Receipt Date: 20080701
  Transmission Date: 20090109
  Serious: Yes (Hospitalization)
  Sender: FDA-Public Use
  Company Number: AU-PFIZER INC-2008055138

PATIENT
  Sex: Male
  Weight: 82 kg

DRUGS (2)
  1. SU-011,248 [Suspect]
     Indication: RENAL CELL CARCINOMA
     Route: 048
     Dates: start: 20080129, end: 20080623
  2. ANPEC [Concomitant]
     Route: 048

REACTIONS (1)
  - LETHARGY [None]
